FAERS Safety Report 16798718 (Version 1)
Quarter: 2019Q3

REPORT INFORMATION
  Report Type: Spontaneous
  Country: BR (occurrence: BR)
  Receive Date: 20190912
  Receipt Date: 20190912
  Transmission Date: 20191005
  Serious: Yes (Hospitalization)
  Sender: FDA-Public Use
  Company Number: BR-009507513-1909BRA003066

PATIENT
  Age: 84 Year
  Sex: Male

DRUGS (9)
  1. JANUMET XR [Suspect]
     Active Substance: METFORMIN HYDROCHLORIDE\SITAGLIPTIN PHOSPHATE
     Indication: TYPE 2 DIABETES MELLITUS
     Dosage: 1 TABLET, EVERY 12 HOURS (Q12H)
     Route: 048
     Dates: start: 20190906, end: 20190907
  2. PROPRANOLOL HYDROCHLORIDE. [Concomitant]
     Active Substance: PROPRANOLOL HYDROCHLORIDE
     Indication: HYPERTENSION
     Dosage: 2 TABLET, QD
     Route: 048
     Dates: start: 2003
  3. GABAPENTIN. [Concomitant]
     Active Substance: GABAPENTIN
     Indication: PAIN IN EXTREMITY
     Dosage: 1 TABLET, QD
     Route: 048
     Dates: start: 2015
  4. MEMANTINE. [Concomitant]
     Active Substance: MEMANTINE
     Indication: DEMENTIA ALZHEIMER^S TYPE
     Dosage: 1 TABLET, QD
     Route: 048
     Dates: start: 201905
  5. METFORMIN [Concomitant]
     Active Substance: METFORMIN HYDROCHLORIDE
     Indication: TYPE 2 DIABETES MELLITUS
     Dosage: 2 TABLETS, QD
     Route: 048
     Dates: start: 2003, end: 20190905
  6. ZOLPIDEM [Concomitant]
     Active Substance: ZOLPIDEM TARTRATE
     Indication: SLEEP DISORDER
     Dosage: 1 TABLET, NIGHTLY (HS)
     Route: 048
     Dates: start: 201905
  7. VITAMIN D (UNSPECIFIED) [Concomitant]
     Active Substance: VITAMIN D NOS
     Indication: PAIN
     Dosage: 1 TABLET, QD
     Route: 048
     Dates: start: 201905
  8. TRAZODONE HYDROCHLORIDE. [Concomitant]
     Active Substance: TRAZODONE HYDROCHLORIDE
     Indication: DEPRESSION
     Dosage: 1 TABLET, QD
     Route: 048
     Dates: start: 201905
  9. CODEINE PHOSPHATE [Concomitant]
     Active Substance: CODEINE PHOSPHATE
     Indication: PAIN IN EXTREMITY
     Dosage: ONLY WHEN THE PATIENT FEELS PAIN IN THE LEGS (PRN)
     Route: 048
     Dates: start: 201905

REACTIONS (3)
  - Hypotension [Unknown]
  - Drug ineffective [Unknown]
  - Blood glucose increased [Recovering/Resolving]

NARRATIVE: CASE EVENT DATE: 201909
